FAERS Safety Report 8586428-7 (Version None)
Quarter: 2012Q3

REPORT INFORMATION
  Report Type: 
  Country: None (occurrence: None)
  Receive Date: 20120810
  Receipt Date: 20120807
  Transmission Date: 20120928
  Serious: No
  Sender: FDA-Public Use
  Company Number: US-BAYER-2012-081253

PATIENT

DRUGS (3)
  1. ICY HOT [Suspect]
     Indication: BACK PAIN
     Dosage: UNK
     Dates: start: 20120807
  2. PATCH [Suspect]
     Indication: BACK PAIN
     Dosage: UNK
     Dates: start: 20120807
  3. ALEVE (CAPLET) [Suspect]
     Indication: BACK PAIN
     Dosage: 3 DF, UNK
     Dates: start: 20120807

REACTIONS (1)
  - BACK PAIN [None]
